FAERS Safety Report 4362095-3 (Version None)
Quarter: 2004Q2

REPORT INFORMATION
  Report Type: 
  Country: None (occurrence: None)
  Receive Date: 20040521
  Receipt Date: 20040415
  Transmission Date: 20050107
  Serious: Yes (Other)
  Sender: FDA-Public Use
  Company Number: 200412917US

PATIENT
  Sex: Female
  Weight: 50 kg

DRUGS (4)
  1. ALLEGRA [Suspect]
     Indication: RHINITIS ALLERGIC
     Route: 048
     Dates: start: 20040408, end: 20040410
  2. CLARITIN REDITABS [Concomitant]
     Indication: RHINITIS ALLERGIC
     Route: 048
     Dates: start: 20040401, end: 20040403
  3. PAXIL [Concomitant]
     Indication: ANXIETY
     Route: 048
     Dates: start: 20030901
  4. SEROQUEL [Concomitant]
     Indication: INSOMNIA
     Dates: start: 20030901

REACTIONS (5)
  - ALANINE AMINOTRANSFERASE DECREASED [None]
  - BLOOD MAGNESIUM INCREASED [None]
  - GRAND MAL CONVULSION [None]
  - HAEMATOCRIT DECREASED [None]
  - HAEMOGLOBIN INCREASED [None]
